FAERS Safety Report 6974958-0 (Version None)
Quarter: 2010Q3

REPORT INFORMATION
  Report Type: 
  Country: None (occurrence: None)
  Receive Date: 20100909
  Receipt Date: 20090310
  Transmission Date: 20110219
  Serious: No
  Sender: FDA-Public Use
  Company Number: US-WYE-H07791509

PATIENT
  Sex: Female
  Weight: 86.26 kg

DRUGS (5)
  1. PRISTIQ [Suspect]
     Indication: DEPRESSION
     Route: 048
     Dates: start: 20081125, end: 20090114
  2. PRISTIQ [Suspect]
     Indication: BIPOLAR DISORDER
     Route: 048
     Dates: start: 20090115, end: 20090126
  3. TRILEPTAL [Concomitant]
  4. KLONOPIN [Concomitant]
  5. QUETIAPINE [Concomitant]

REACTIONS (1)
  - RECTAL HAEMORRHAGE [None]
